FAERS Safety Report 4790425-7 (Version None)
Quarter: 2005Q4

REPORT INFORMATION
  Report Type: 
  Country: None (occurrence: None)
  Receive Date: 20051005
  Receipt Date: 20050923
  Transmission Date: 20060501
  Serious: Yes (Other)
  Sender: FDA-Public Use
  Company Number: 2005-09-1796

PATIENT
  Sex: Male

DRUGS (1)
  1. LORATADINE [Suspect]
     Dosage: ORAL
     Route: 048

REACTIONS (3)
  - BLOOD MAGNESIUM INCREASED [None]
  - BLOOD POTASSIUM INCREASED [None]
  - LOSS OF CONSCIOUSNESS [None]
